FAERS Safety Report 6703699-X (Version None)
Quarter: 2010Q2

REPORT INFORMATION
  Report Type: 
  Country: None (occurrence: None)
  Receive Date: 20100430
  Receipt Date: 20100209
  Transmission Date: 20101027
  Serious: No
  Sender: FDA-Public Use
  Company Number: A0843769A

PATIENT
  Age: 52 Year
  Sex: Male

DRUGS (3)
  1. FLOVENT [Suspect]
     Indication: PNEUMONIA
     Dosage: 1PUFF SINGLE DOSE
     Route: 055
     Dates: start: 20100209
  2. ALBUTEROL [Concomitant]
  3. LEVAQUIN [Concomitant]

REACTIONS (1)
  - CHEST DISCOMFORT [None]
